FAERS Safety Report 24835601 (Version 1)
Quarter: 2025Q1

REPORT INFORMATION
  Report Type: Spontaneous
  Country: US (occurrence: None)
  Receive Date: 20250113
  Receipt Date: 20250113
  Transmission Date: 20250408
  Serious: Yes (Hospitalization)
  Sender: FDA-CTU
  Company Number: None

PATIENT
  Sex: Male

DRUGS (2)
  1. TOBRAMYCIN [Suspect]
     Active Substance: TOBRAMYCIN
     Indication: Cystic fibrosis
     Dosage: FREQUENCY : TWICE A DAY;?
     Route: 055
     Dates: start: 20241023
  2. PULMOZYME [Concomitant]
     Active Substance: DORNASE ALFA

REACTIONS (4)
  - Infective pulmonary exacerbation of cystic fibrosis [None]
  - Sleep disorder [None]
  - Weight decreased [None]
  - Loss of personal independence in daily activities [None]
